FAERS Safety Report 6579045-1 (Version None)
Quarter: 2010Q1

REPORT INFORMATION
  Report Type: 
  Country: None (occurrence: None)
  Receive Date: 20100203
  Receipt Date: 20100127
  Transmission Date: 20100710
  Serious: Yes (Death)
  Sender: FDA-Public Use
  Company Number: 2010EU000320

PATIENT
  Age: 12 Year
  Sex: Male

DRUGS (3)
  1. MYCAMINE [Suspect]
     Indication: OESOPHAGEAL CANDIDIASIS
     Dates: start: 20091230
  2. VORICONAZOLE [Concomitant]
  3. AMBISOME [Concomitant]

REACTIONS (6)
  - DISEASE COMPLICATION [None]
  - HAEMATEMESIS [None]
  - INFECTION [None]
  - MULTI-ORGAN FAILURE [None]
  - OFF LABEL USE [None]
  - RENAL DISORDER [None]
